FAERS Safety Report 9001951 (Version 3)
Quarter: 2013Q2

REPORT INFORMATION
  Report Type: Spontaneous
  Country: US (occurrence: US)
  Receive Date: 20130108
  Receipt Date: 20130418
  Transmission Date: 20140414
  Serious: No
  Sender: FDA-Public Use
  Company Number: US-009507513-1212USA010819

PATIENT
  Age: 20 Year
  Sex: Female
  Weight: 68.27 kg

DRUGS (2)
  1. IMPLANON [Suspect]
     Indication: CONTRACEPTION
     Dosage: 68MG ROD UP TO 3 YEARS
     Route: 059
     Dates: start: 20121217
  2. IBUPROFEN [Concomitant]

REACTIONS (4)
  - Implant site pruritus [Unknown]
  - Implant site pain [Recovered/Resolved]
  - Device dislocation [Unknown]
  - Medical device complication [Unknown]
